FAERS Safety Report 9433850 (Version 1)
Quarter: 2013Q3

REPORT INFORMATION
  Report Type: Spontaneous
  Country: US (occurrence: US)
  Receive Date: 20130731
  Receipt Date: 20130731
  Transmission Date: 20140515
  Serious: No
  Sender: FDA-Public Use
  Company Number: US-ASTRAZENECA-2013SE50443

PATIENT
  Sex: Male

DRUGS (4)
  1. SEROQUEL XR [Suspect]
     Indication: BIPOLAR DISORDER
     Route: 048
  2. SEROQUEL XR [Suspect]
     Indication: MANIA
     Route: 048
  3. SEROQUEL XR [Suspect]
     Indication: BIPOLAR DISORDER
     Dosage: SEROQUEL XL
     Route: 048
  4. SEROQUEL XR [Suspect]
     Indication: MANIA
     Dosage: SEROQUEL XL
     Route: 048

REACTIONS (4)
  - Mania [Unknown]
  - Insomnia [Unknown]
  - Abnormal behaviour [Unknown]
  - Drug effect decreased [Unknown]
